FAERS Safety Report 24249101 (Version 1)
Quarter: 2024Q3

REPORT INFORMATION
  Report Type: Spontaneous
  Country: ET (occurrence: ET)
  Receive Date: 20240826
  Receipt Date: 20240826
  Transmission Date: 20241016
  Serious: Yes (Death, Other)
  Sender: EPIC PHARM
  Company Number: ET-EPICPHARMA-ET-2024EPCLIT01032

PATIENT

DRUGS (1)
  1. GENTAMICIN SULFATE [Suspect]
     Active Substance: GENTAMICIN SULFATE
     Indication: Endocarditis
     Route: 042

REACTIONS (2)
  - Nephropathy toxic [Fatal]
  - Product use in unapproved indication [Unknown]
